FAERS Safety Report 9197484 (Version 1)
Quarter: 2013Q1

REPORT INFORMATION
  Report Type: Spontaneous
  Country: US (occurrence: US)
  Receive Date: 20130328
  Receipt Date: 20130328
  Transmission Date: 20140127
  Serious: No
  Sender: FDA-Public Use
  Company Number: US-ASTRAZENECA-2013SE18078

PATIENT
  Age: 68 Year
  Sex: Female
  Weight: 86.2 kg

DRUGS (6)
  1. CRESTOR [Suspect]
     Indication: BLOOD CHOLESTEROL INCREASED
     Route: 048
     Dates: start: 2010
  2. LOTREL [Concomitant]
     Indication: HYPERTENSION
     Dosage: 10/20 HS
     Route: 048
  3. HCTZ [Concomitant]
     Indication: HYPERTENSION
     Dosage: NR DAILY
     Route: 048
  4. PREVACID [Concomitant]
     Indication: DYSPEPSIA
     Dosage: NR PRN
     Route: 048
  5. CLARITIN [Concomitant]
     Indication: SEASONAL ALLERGY
     Dosage: NR PRN
     Route: 048
  6. VITAMIN D [Concomitant]
     Dosage: PRN
     Route: 048

REACTIONS (5)
  - Osteoporosis [Unknown]
  - Gait disturbance [Unknown]
  - Muscular weakness [Unknown]
  - Blood cholesterol increased [Unknown]
  - Off label use [Unknown]
